FAERS Safety Report 10467462 (Version 3)
Quarter: 2014Q4

REPORT INFORMATION
  Report Type: Spontaneous
  Country: FR (occurrence: FR)
  Receive Date: 20140922
  Receipt Date: 20141014
  Transmission Date: 20150528
  Serious: Yes (Other)
  Sender: FDA-Public Use
  Company Number: FR-TEVA-510191ISR

PATIENT
  Sex: Female

DRUGS (3)
  1. AZILECT [Suspect]
     Active Substance: RASAGILINE MESYLATE
     Route: 065
  2. ZOMIGORO [Concomitant]
     Active Substance: ZOLMITRIPTAN
  3. MODOPAR [Concomitant]
     Active Substance: BENSERAZIDE HYDROCHLORIDE\LEVODOPA
     Dosage: FOR LONG TIME

REACTIONS (8)
  - Agnosia [Unknown]
  - Headache [Not Recovered/Not Resolved]
  - Hypertension [Recovered/Resolved]
  - Amnesia [Recovered/Resolved]
  - Eczema [Not Recovered/Not Resolved]
  - Transient ischaemic attack [Recovered/Resolved]
  - Blood pressure increased [Recovered/Resolved]
  - Aphasia [Recovered/Resolved]
